FAERS Safety Report 9036225 (Version 1)
Quarter: 2013Q1

REPORT INFORMATION
  Report Type: Spontaneous
  Country: AU (occurrence: None)
  Receive Date: 20130114
  Receipt Date: 20130114
  Transmission Date: 20140127
  Serious: Yes (Hospitalization, Other)
  Sender: FDA-Public Use
  Company Number: 2013P1000026

PATIENT
  Age: 39 Year
  Sex: Female

DRUGS (4)
  1. LORAZEPAM [Suspect]
     Indication: PSYCHOTIC DISORDER
  2. LORAZEPAM [Suspect]
     Indication: WITHDRAWAL SYNDROME
  3. LORAZEPAM [Suspect]
     Indication: CATATONIA
  4. RISPERIDONE [Concomitant]

REACTIONS (3)
  - Acute psychosis [None]
  - Catatonia [None]
  - Drug withdrawal syndrome [None]
